FAERS Safety Report 6064396-X (Version None)
Quarter: 2009Q1

REPORT INFORMATION
  Report Type: 
  Country: None (occurrence: None)
  Receive Date: 20090203
  Receipt Date: 20090203
  Transmission Date: 20090719
  Serious: No
  Sender: FDA-Public Use
  Company Number: None

PATIENT
  Age: 55 Year
  Sex: Male
  Weight: 100.7 kg

DRUGS (1)
  1. VARENICLINE [Suspect]
     Dates: start: 20080613, end: 20080614

REACTIONS (4)
  - HEADACHE [None]
  - NAUSEA [None]
  - PALPITATIONS [None]
  - VOMITING [None]
